FAERS Safety Report 6389427-9 (Version None)
Quarter: 2009Q4

REPORT INFORMATION
  Report Type: 
  Country: None (occurrence: None)
  Receive Date: 20091006
  Receipt Date: 20090930
  Transmission Date: 20100525
  Serious: Yes (Other)
  Sender: FDA-Public Use
  Company Number: GB-SP-2009-03608

PATIENT
  Age: 75 Year
  Sex: Male

DRUGS (1)
  1. IMMUCYST [Suspect]
     Indication: BLADDER CANCER
     Route: 043
     Dates: end: 20090720

REACTIONS (6)
  - ASTHENIA [None]
  - BOVINE TUBERCULOSIS [None]
  - DISSEMINATED TUBERCULOSIS [None]
  - MALAISE [None]
  - NIGHT SWEATS [None]
  - PYREXIA [None]
